FAERS Safety Report 18924153 (Version 2)
Quarter: 2021Q1

REPORT INFORMATION
  Report Type: Report from Study
  Country: MX (occurrence: MX)
  Receive Date: 20210222
  Receipt Date: 20210227
  Transmission Date: 20210420
  Serious: Yes (Other)
  Sender: FDA-Public Use
  Company Number: MX-UCBSA-2021007705

PATIENT
  Age: 28 Year
  Sex: Male
  Weight: 52 kg

DRUGS (10)
  1. FAMOTIDINE. [Concomitant]
     Active Substance: FAMOTIDINE
     Indication: GASTRITIS
  2. DOSIER [BUPROPION HYDROCHLORIDE] [Concomitant]
     Indication: GASTRITIS
     Dosage: 5 MILLIGRAM, 3X/DAY (TID)
     Route: 048
     Dates: start: 202102
  3. ARLUY [Concomitant]
     Indication: GASTRITIS
     Dosage: 1 TABLET BEFORE BREAKFAST AND 1 TABLET BEFORE FOOD
     Route: 048
     Dates: start: 202102
  4. BRIVARACETAM [Suspect]
     Active Substance: BRIVARACETAM
     Indication: EPILEPSY
     Dosage: 50 MILLIGRAM, 2X/DAY (.5MG BID)
     Route: 048
     Dates: start: 20201203, end: 20210106
  5. BRIVARACETAM [Suspect]
     Active Substance: BRIVARACETAM
     Dosage: 50MG TABLET, 25MG IN AM AND 50MG AT NIGHT
     Route: 048
     Dates: start: 20210107
  6. COPINAR [Concomitant]
     Indication: EPILEPSY
     Dosage: 100 MILLIGRAM, 2X/DAY (BID)
     Route: 048
     Dates: start: 20200925, end: 20201212
  7. RISPERIDONE. [Concomitant]
     Active Substance: RISPERIDONE
     Indication: SLEEP APNOEA SYNDROME
     Dosage: 1 MILLIGRAM, ONCE DAILY (QD)
     Route: 048
     Dates: start: 2018
  8. FLUOXETINE [Concomitant]
     Active Substance: FLUOXETINE HYDROCHLORIDE
     Indication: DEPRESSION
     Dosage: 20 MILLIGRAM, ONCE DAILY (QD)
     Route: 048
     Dates: start: 2019
  9. ESPAVEN [RANITIDINE HYDROCHLORIDE] [Concomitant]
     Indication: GASTRITIS
     Dosage: 2 DOSAGE FORM, 3X/DAY (TID)
     Route: 048
  10. DEXIVANT [Concomitant]
     Indication: GASTRITIS
     Dosage: 30 MILLIGRAM, 2X/DAY (BID)
     Route: 048
     Dates: start: 202102

REACTIONS (4)
  - Impulsive behaviour [Recovered/Resolved]
  - Blood pressure decreased [Recovered/Resolved]
  - Migraine [Recovering/Resolving]
  - Off label use [Unknown]

NARRATIVE: CASE EVENT DATE: 20201203
